FAERS Safety Report 5365101-2 (Version None)
Quarter: 2007Q2

REPORT INFORMATION
  Report Type: 
  Country: None (occurrence: None)
  Receive Date: 20070530
  Receipt Date: 20070113
  Transmission Date: 20071010
  Serious: No
  Sender: FDA-Public Use
  Company Number: 2007PV028402

PATIENT
  Age: 60 Year
  Sex: Male

DRUGS (4)
  1. BYETTA [Suspect]
     Indication: DIABETES MELLITUS NON-INSULIN-DEPENDENT
     Dosage: 10 MCG;BID;SC   5 MCG;BID;SC   5 MCG;BID;SC
     Route: 058
     Dates: start: 20061129, end: 20061207
  2. BYETTA [Suspect]
     Indication: DIABETES MELLITUS NON-INSULIN-DEPENDENT
     Dosage: 10 MCG;BID;SC   5 MCG;BID;SC   5 MCG;BID;SC
     Route: 058
     Dates: start: 20061226, end: 20070111
  3. BYETTA [Suspect]
     Indication: DIABETES MELLITUS NON-INSULIN-DEPENDENT
     Dosage: 10 MCG;BID;SC   5 MCG;BID;SC   5 MCG;BID;SC
     Route: 058
     Dates: start: 20070112
  4. METFORMIN HCL [Concomitant]

REACTIONS (2)
  - INJECTION SITE BRUISING [None]
  - POST PROCEDURAL COMPLICATION [None]
